FAERS Safety Report 5685276-5 (Version None)
Quarter: 2008Q1

REPORT INFORMATION
  Report Type: 
  Country: None (occurrence: None)
  Receive Date: 20080328
  Receipt Date: 20080320
  Transmission Date: 20080703
  Serious: Yes (Other)
  Sender: FDA-Public Use
  Company Number: HQWYE892613JUL06

PATIENT
  Sex: Female

DRUGS (1)
  1. PREMARIN [Suspect]
     Dosage: UNKNOWN, 120 MOS. (10 YEARS)
     Dates: start: 19850101, end: 19950101

REACTIONS (1)
  - BREAST CANCER METASTATIC [None]
